FAERS Safety Report 9916617 (Version 2)
Quarter: 2014Q2

REPORT INFORMATION
  Report Type: Spontaneous
  Country: FR (occurrence: FR)
  Receive Date: 20140221
  Receipt Date: 20140401
  Transmission Date: 20141212
  Serious: Yes (Hospitalization)
  Sender: FDA-Public Use
  Company Number: FR-ABBVIE-14P-056-1204376-00

PATIENT
  Age: 19 Year
  Sex: Female

DRUGS (7)
  1. DEPAKOTE [Suspect]
     Indication: MATERNAL EXPOSURE TIMING UNSPECIFIED
     Route: 064
  2. DEPAKOTE [Suspect]
     Indication: MENTAL DISORDER
     Route: 048
  3. TROPATEPINE HYDROCHLORIDE [Suspect]
     Indication: MENTAL DISORDER
     Route: 048
  4. CLORAZEPATE DIPOTASSIUM [Suspect]
     Indication: MENTAL DISORDER
     Route: 048
  5. NOZINAN [Suspect]
     Indication: MENTAL DISORDER
     Route: 048
  6. ZUCLOPENTHIXOL HYDROCHLORIDE [Suspect]
     Indication: MENTAL DISORDER
     Route: 042
  7. VARNOLINE [Suspect]
     Indication: CONTRACEPTION
     Route: 048
     Dates: start: 201309

REACTIONS (4)
  - Deep vein thrombosis [Recovering/Resolving]
  - Pain in extremity [Recovering/Resolving]
  - Pulmonary embolism [Recovering/Resolving]
  - Fibrin D dimer increased [Recovering/Resolving]
